FAERS Safety Report 11209354 (Version 1)
Quarter: 2015Q2

REPORT INFORMATION
  Report Type: Spontaneous
  Country: IT (occurrence: IT)
  Receive Date: 20150622
  Receipt Date: 20150622
  Transmission Date: 20150821
  Serious: Yes (Hospitalization)
  Sender: FDA-Public Use
  Company Number: IT-SA-2015SA087509

PATIENT
  Age: 81 Year
  Sex: Male

DRUGS (4)
  1. FLECAINIDE [Concomitant]
     Active Substance: FLECAINIDE
  2. VALSARTAN. [Concomitant]
     Active Substance: VALSARTAN
  3. TICLOPIDINE [Concomitant]
     Active Substance: TICLOPIDINE
  4. FUROSEMIDE. [Suspect]
     Active Substance: FUROSEMIDE
     Route: 065

REACTIONS (9)
  - Hypertonia [Recovering/Resolving]
  - Hypocalcaemia [Unknown]
  - Hypoparathyroidism [Unknown]
  - Hypomagnesaemia [Unknown]
  - Resting tremor [Recovering/Resolving]
  - Hypokalaemia [Unknown]
  - Asthenia [Unknown]
  - Confusional state [Unknown]
  - Gait disturbance [Unknown]
